FAERS Safety Report 10101844 (Version 1)
Quarter: 2014Q2

REPORT INFORMATION
  Report Type: Spontaneous
  Country: ES (occurrence: None)
  Receive Date: 20140422
  Receipt Date: 20140422
  Transmission Date: 20141212
  Serious: Yes (Other)
  Sender: FDA-Public Use
  Company Number: 2014P1003119

PATIENT
  Age: 39 Year
  Sex: Male

DRUGS (1)
  1. CEFAZOLIN [Suspect]

REACTIONS (2)
  - Anaphylactic shock [None]
  - Drug hypersensitivity [None]
